FAERS Safety Report 13160473 (Version 3)
Quarter: 2017Q1

REPORT INFORMATION
  Report Type: Spontaneous
  Country: AU (occurrence: AU)
  Receive Date: 20170128
  Receipt Date: 20170308
  Transmission Date: 20170428
  Serious: Yes (Hospitalization, Other)
  Sender: FDA-Public Use
  Company Number: AU-AMGEN-AUSSP2017010645

PATIENT
  Age: 70 Year
  Sex: Female

DRUGS (1)
  1. PROLIA [Suspect]
     Active Substance: DENOSUMAB
     Indication: OSTEOPOROSIS
     Dosage: 60 MG, Q6MO
     Route: 058
     Dates: start: 20160715, end: 20170114

REACTIONS (37)
  - Feeling abnormal [Unknown]
  - Limb discomfort [Recovered/Resolved]
  - Musculoskeletal discomfort [Unknown]
  - Pain [Recovered/Resolved]
  - Abdominal discomfort [Unknown]
  - Vomiting [Unknown]
  - Dizziness [Unknown]
  - Oral pain [Unknown]
  - Dyspepsia [Not Recovered/Not Resolved]
  - Diabetes mellitus [Unknown]
  - Anxiety [Unknown]
  - Paraesthesia [Recovered/Resolved]
  - Urine output decreased [Unknown]
  - Pain in jaw [Recovered/Resolved]
  - Mouth ulceration [Unknown]
  - Gastritis [Unknown]
  - Dysgeusia [Not Recovered/Not Resolved]
  - Cardiac disorder [Unknown]
  - Muscle spasms [Recovered/Resolved]
  - Chills [Unknown]
  - Toothache [Recovered/Resolved]
  - Dysuria [Not Recovered/Not Resolved]
  - Gastrooesophageal reflux disease [Unknown]
  - Cardiac failure [Unknown]
  - Nausea [Unknown]
  - Nervousness [Unknown]
  - Cerebral disorder [Unknown]
  - Condition aggravated [Unknown]
  - Rash [Unknown]
  - Headache [Unknown]
  - Arthralgia [Not Recovered/Not Resolved]
  - Head discomfort [Not Recovered/Not Resolved]
  - Renal disorder [Not Recovered/Not Resolved]
  - Ear pain [Recovered/Resolved]
  - Decreased appetite [Unknown]
  - Abdominal pain upper [Unknown]
  - Pruritus [Unknown]

NARRATIVE: CASE EVENT DATE: 201701
